FAERS Safety Report 5863516-7 (Version None)
Quarter: 2008Q3

REPORT INFORMATION
  Report Type: 
  Country: None (occurrence: None)
  Receive Date: 20080828
  Receipt Date: 20080827
  Transmission Date: 20090109
  Serious: Yes (Other)
  Sender: FDA-Public Use
  Company Number: US-BOEHRINGER INGELHEIM GMBH, GERMANY-2008-DE-04698GD

PATIENT
  Sex: Female

DRUGS (7)
  1. TRAZODONE HCL [Suspect]
  2. AZATHIOPRINE [Suspect]
  3. WARFARIN SODIUM [Suspect]
     Indication: CAROTID ARTERY THROMBOSIS
     Dosage: 5,5 MG AVERAGE DAILY DOSE, INCREASED TO 5,75 MG DAILY
  4. METHYLPREDNISOLONE 16MG TAB [Suspect]
     Dosage: DOSE TAPERED BY 2 MG EVERY 2 WEEKS
  5. LANSOPRAZOLE [Concomitant]
  6. ALPRAZOLAM [Concomitant]
  7. ALENDRONATE SODIUM [Concomitant]

REACTIONS (3)
  - DRUG INTERACTION [None]
  - HEPATIC ENZYME INCREASED [None]
  - INTERNATIONAL NORMALISED RATIO DECREASED [None]
